FAERS Safety Report 25529088 (Version 1)
Quarter: 2025Q3

REPORT INFORMATION
  Report Type: Spontaneous
  Country: US (occurrence: US)
  Receive Date: 20250708
  Receipt Date: 20250708
  Transmission Date: 20251021
  Serious: Yes (Hospitalization)
  Sender: IMPEL NEUROPHARMA
  Company Number: US-IMPEL-2025-US-031977

PATIENT
  Age: 45 Year
  Sex: Female
  Weight: 94.8 kg

DRUGS (10)
  1. LISINOPRIL [Concomitant]
     Active Substance: LISINOPRIL
  2. LINZESS [Concomitant]
     Active Substance: LINACLOTIDE
  3. LEVOTHYROXINE SODIUM [Concomitant]
     Active Substance: LEVOTHYROXINE SODIUM
  4. VERAPAMIL HCL [Concomitant]
     Active Substance: VERAPAMIL HYDROCHLORIDE
  5. GABAPENTIN [Concomitant]
     Active Substance: GABAPENTIN
  6. METFORMIN HYDROCHLORIDE [Concomitant]
     Active Substance: METFORMIN HYDROCHLORIDE
  7. STELARA [Concomitant]
     Active Substance: USTEKINUMAB
  8. ATORVASTATIN CALCIUM [Concomitant]
     Active Substance: ATORVASTATIN CALCIUM
  9. ZOFRAN ODT [Concomitant]
     Active Substance: ONDANSETRON HYDROCHLORIDE
  10. TRUDHESA [Suspect]
     Active Substance: DIHYDROERGOTAMINE MESYLATE
     Indication: Product used for unknown indication
     Route: 045

REACTIONS (1)
  - Gastrointestinal haemorrhage [Unknown]
